FAERS Safety Report 12815826 (Version 1)
Quarter: 2016Q4

REPORT INFORMATION
  Report Type: Report from Study
  Country: None (occurrence: GB)
  Receive Date: 20161005
  Receipt Date: 20161005
  Transmission Date: 20170207
  Serious: Yes (Other)
  Sender: FDA-Public Use
  Company Number: GB-ABBVIE-16K-167-1741150-00

PATIENT
  Sex: Female

DRUGS (2)
  1. HUMIRA [Suspect]
     Active Substance: ADALIMUMAB
     Route: 058
  2. HUMIRA [Suspect]
     Active Substance: ADALIMUMAB
     Indication: PRODUCT USED FOR UNKNOWN INDICATION
     Route: 058
     Dates: start: 201509

REACTIONS (16)
  - Muscle spasms [Recovered/Resolved]
  - Communication disorder [Recovered/Resolved]
  - Cerebrovascular accident [Recovered/Resolved]
  - Agraphia [Recovered/Resolved]
  - Headache [Recovered/Resolved]
  - Fatigue [Recovered/Resolved]
  - Motor dysfunction [Recovered/Resolved]
  - Grip strength decreased [Recovered/Resolved]
  - Vision blurred [Recovered/Resolved]
  - Flatulence [Recovered/Resolved]
  - Amnesia [Recovered/Resolved]
  - Hot flush [Recovered/Resolved]
  - Abdominal distension [Recovered/Resolved]
  - Contusion [Recovered/Resolved]
  - Dizziness [Recovered/Resolved]
  - Back pain [Recovered/Resolved]

NARRATIVE: CASE EVENT DATE: 201509
